FAERS Safety Report 5738207-3 (Version None)
Quarter: 2008Q2

REPORT INFORMATION
  Report Type: 
  Country: None (occurrence: None)
  Receive Date: 20080514
  Receipt Date: 20080513
  Transmission Date: 20081010
  Serious: Yes (Disabling)
  Sender: FDA-Public Use
  Company Number: CAWYE236129AUG07

PATIENT
  Age: 67 Year
  Sex: Female

DRUGS (1)
  1. EFFEXOR XR [Suspect]
     Route: 048
     Dates: start: 20050101, end: 20070501

REACTIONS (10)
  - BRAIN INJURY [None]
  - DRUG WITHDRAWAL SYNDROME [None]
  - DRY MOUTH [None]
  - GAIT DISTURBANCE [None]
  - HYPERHIDROSIS [None]
  - PARAESTHESIA [None]
  - QUALITY OF LIFE DECREASED [None]
  - TREMOR [None]
  - VERTIGO [None]
  - VISION BLURRED [None]
